FAERS Safety Report 14197580 (Version 1)
Quarter: 2017Q4

REPORT INFORMATION
  Report Type: Spontaneous
  Country: US (occurrence: US)
  Receive Date: 20171116
  Receipt Date: 20171116
  Transmission Date: 20180321
  Serious: No
  Sender: FDA-Public Use
  Company Number: US-AMPHASTAR PHARMACEUTICALS, INC.-2034427

PATIENT
  Age: 15 Year
  Sex: Male
  Weight: 61.36 kg

DRUGS (1)
  1. ENOXAPARIN SODIUM. [Suspect]
     Active Substance: ENOXAPARIN SODIUM
     Indication: AUTOIMMUNE DISORDER
     Route: 058

REACTIONS (2)
  - Exposure to extreme temperature [Recovered/Resolved]
  - Product storage error [None]
